FAERS Safety Report 8129548-3 (Version None)
Quarter: 2012Q1

REPORT INFORMATION
  Report Type: 
  Country: None (occurrence: None)
  Receive Date: 20120103
  Receipt Date: 20111107
  Transmission Date: 20120608
  Serious: No
  Sender: FDA-Public Use
  Company Number: AE-2011-003174

PATIENT
  Age: 46 Year
  Sex: Female
  Weight: 72.5755 kg

DRUGS (3)
  1. PEGASYS [Concomitant]
  2. INCIVEK [Suspect]
     Dosage: (750 MG, 2 TABLETS EVERY 7-9 HOURS), ORAL
     Route: 048
     Dates: start: 20111014
  3. RIBAVIRIN [Concomitant]

REACTIONS (1)
  - DRUG DOSE OMISSION [None]
